FAERS Safety Report 15602491 (Version 1)
Quarter: 2018Q4

REPORT INFORMATION
  Report Type: Spontaneous
  Country: GB (occurrence: GB)
  Receive Date: 20181109
  Receipt Date: 20181109
  Transmission Date: 20190205
  Serious: Yes (Hospitalization)
  Sender: FDA-Public Use
  Company Number: GB-PFIZER INC-2018453655

PATIENT
  Age: 55 Year
  Sex: Female
  Weight: 74.8 kg

DRUGS (6)
  1. ESTRIOL [Suspect]
     Active Substance: ESTRIOL
     Indication: HYSTERECTOMY
     Dosage: 1 DF, WEEKLY (APPLICATOR)
     Route: 067
     Dates: end: 20181006
  2. CAPECITABINE. [Concomitant]
     Active Substance: CAPECITABINE
     Indication: CHEMOTHERAPY
  3. OXALIPLATIN. [Concomitant]
     Active Substance: OXALIPLATIN
     Indication: CHEMOTHERAPY
  4. AMLODIPINE [Concomitant]
     Active Substance: AMLODIPINE BESYLATE
  5. FERROUS FUMARATE [Concomitant]
     Active Substance: FERROUS FUMARATE
  6. PREMARIN [Suspect]
     Active Substance: ESTROGENS, CONJUGATED
     Dosage: 1 DF, 1X/DAY
     Route: 048
     Dates: end: 20181006

REACTIONS (2)
  - Seizure [Unknown]
  - Intracranial venous sinus thrombosis [Not Recovered/Not Resolved]

NARRATIVE: CASE EVENT DATE: 20181006
